FAERS Safety Report 4870984-6 (Version None)
Quarter: 2005Q4

REPORT INFORMATION
  Report Type: 
  Country: None (occurrence: None)
  Receive Date: 20051228
  Receipt Date: 20051214
  Transmission Date: 20060501
  Serious: Yes (Death, Hospitalization)
  Sender: FDA-Public Use
  Company Number: 200512955BWH

PATIENT
  Sex: Female

DRUGS (4)
  1. TRASYLOL [Suspect]
     Indication: CORONARY ARTERY SURGERY
     Dosage: 1 ML, ONCE, INTRAVENOUS ; 200 ML, ONCE, INTRAVENOUS
     Route: 042
     Dates: start: 20050722
  2. TRASYLOL [Suspect]
     Indication: MITRAL VALVE REPLACEMENT
     Dosage: 1 ML, ONCE, INTRAVENOUS ; 200 ML, ONCE, INTRAVENOUS
     Route: 042
     Dates: start: 20050722
  3. TRASYLOL [Suspect]
     Indication: CORONARY ARTERY SURGERY
     Dosage: 1 ML, ONCE, INTRAVENOUS ; 200 ML, ONCE, INTRAVENOUS
     Route: 042
     Dates: start: 20050722
  4. TRASYLOL [Suspect]
     Indication: MITRAL VALVE REPLACEMENT
     Dosage: 1 ML, ONCE, INTRAVENOUS ; 200 ML, ONCE, INTRAVENOUS
     Route: 042
     Dates: start: 20050722

REACTIONS (8)
  - ATRIAL THROMBOSIS [None]
  - CORONARY ARTERY THROMBOSIS [None]
  - PLATELET COUNT DECREASED [None]
  - PROCEDURAL COMPLICATION [None]
  - PULMONARY EMBOLISM [None]
  - PULMONARY HAEMORRHAGE [None]
  - SURGICAL PROCEDURE REPEATED [None]
  - WOUND SECRETION [None]
